FAERS Safety Report 24882742 (Version 1)
Quarter: 2025Q1

REPORT INFORMATION
  Report Type: Spontaneous
  Country: FR (occurrence: FR)
  Receive Date: 20250124
  Receipt Date: 20250124
  Transmission Date: 20250409
  Serious: Yes (Hospitalization)
  Sender: CHEPLAPHARM
  Company Number: None

PATIENT
  Age: 73 Year
  Sex: Female

DRUGS (9)
  1. OLANZAPINE [Suspect]
     Active Substance: OLANZAPINE
     Indication: Bipolar disorder
     Dosage: 10MG 2/EVENING ??DAILY DOSE: 20 MILLIGRAM
     Route: 048
     Dates: end: 20241219
  2. TERALITHE [Suspect]
     Active Substance: LITHIUM CARBONATE
     Indication: Bipolar disorder
     Dosage: 400 MG 2/EVENING?DAILY DOSE: 2 DOSAGE FORM
     Route: 048
     Dates: start: 20240620, end: 20241210
  3. TIAPRIDE [Suspect]
     Active Substance: TIAPRIDE
     Indication: Bipolar disorder
     Dosage: 138 MG/ML 50 MG AT BEDTIME IF NECESSARY?DAILY DOSE: 50 MILLIGRAM
     Route: 048
     Dates: end: 20241219
  4. ALFUZOSIN HYDROCHLORIDE [Concomitant]
     Active Substance: ALFUZOSIN HYDROCHLORIDE
     Dosage: UNK?DAILY DOSE: 10 MILLIGRAM
     Route: 048
     Dates: start: 20241010, end: 20241214
  5. TROPATEPINE HYDROCHLORIDE [Concomitant]
     Active Substance: TROPATEPINE HYDROCHLORIDE
     Dosage: 10MG IN THE MORNING ??DAILY DOSE: 1 DOSAGE FORM
     Route: 048
     Dates: end: 20241219
  6. POLYETHYLENE GLYCOLS [Concomitant]
     Active Substance: POLYETHYLENE GLYCOLS
     Dosage: UNK?DAILY DOSE: 20 MILLIGRAM
     Route: 048
     Dates: start: 20241010, end: 20241219
  7. OXYCODONE [Concomitant]
     Active Substance: OXYCODONE
     Route: 048
     Dates: start: 20241010, end: 20241215
  8. OXYCODONE [Concomitant]
     Active Substance: OXYCODONE
     Route: 048
     Dates: start: 20241010, end: 20241219
  9. ACETAMINOPHEN [Concomitant]
     Active Substance: ACETAMINOPHEN
     Route: 048
     Dates: start: 20241010, end: 20241215

REACTIONS (3)
  - Extrapyramidal disorder [Recovered/Resolved]
  - Somnolence [Recovering/Resolving]
  - Toxicity to various agents [Recovering/Resolving]

NARRATIVE: CASE EVENT DATE: 20241210
